FAERS Safety Report 25878273 (Version 1)
Quarter: 2025Q4

REPORT INFORMATION
  Report Type: Spontaneous
  Country: US (occurrence: None)
  Receive Date: 20251002
  Receipt Date: 20251002
  Transmission Date: 20260118
  Serious: Yes (Other)
  Sender: FDA-CTU
  Company Number: None

PATIENT
  Age: 3 Year
  Sex: Female
  Weight: 14.85 kg

DRUGS (4)
  1. YCANTH [Suspect]
     Active Substance: CANTHARIDIN
     Indication: Molluscum contagiosum
     Dosage: OTHER FREQUENCY : ONCE;?
     Route: 061
     Dates: start: 20250929
  2. TYLENOL [Concomitant]
     Active Substance: ACETAMINOPHEN
  3. MOTRIN [Concomitant]
     Active Substance: IBUPROFEN
  4. MUPIROCIN [Concomitant]
     Active Substance: MUPIROCIN

REACTIONS (9)
  - Pain [None]
  - Blister [None]
  - Skin disorder [None]
  - Anal incontinence [None]
  - Screaming [None]
  - Crying [None]
  - Lethargy [None]
  - Confusional state [None]
  - Thinking abnormal [None]

NARRATIVE: CASE EVENT DATE: 20250929
